FAERS Safety Report 6748144-3 (Version None)
Quarter: 2010Q2

REPORT INFORMATION
  Report Type: 
  Country: None (occurrence: None)
  Receive Date: 20100531
  Receipt Date: 20100524
  Transmission Date: 20101027
  Serious: Yes (Hospitalization)
  Sender: FDA-Public Use
  Company Number: US-JNJFOC-20100509662

PATIENT
  Sex: Male
  Weight: 78.02 kg

DRUGS (11)
  1. DURAGESIC-100 [Suspect]
     Indication: NECK PAIN
     Dosage: 100+50 MCG = 150 MCG
     Route: 062
  2. DURAGESIC-100 [Suspect]
     Indication: BACK PAIN
     Dosage: 100+50 MCG = 150 MCG
     Route: 062
  3. FENTANYL CITRATE [Suspect]
     Indication: NECK PAIN
     Dosage: 100+50 MCG = 150 MCG
     Route: 062
  4. FENTANYL CITRATE [Suspect]
     Indication: BACK PAIN
     Dosage: 100+50 MCG = 150 MCG
     Route: 062
  5. FENTANYL CITRATE [Suspect]
     Indication: NECK PAIN
     Dosage: 100 UG/HR + 50 UG/HR = 150 MCG PATCHES,   NDC FOR 100 UG/HR PATCH: 0781-7244-55
     Route: 062
  6. FENTANYL CITRATE [Suspect]
     Indication: BACK PAIN
     Dosage: 100 UG/HR + 50 UG/HR = 150 MCG PATCHES,   NDC FOR 100 UG/HR PATCH: 0781-7244-55
     Route: 062
  7. FENTANYL CITRATE [Suspect]
     Dosage: 100+50 MCG = 150 MCG
     Route: 062
  8. FENTANYL CITRATE [Suspect]
     Dosage: 100+50 MCG = 150 MCG
     Route: 062
  9. OXYCONTIN [Concomitant]
     Indication: BREAKTHROUGH PAIN
     Route: 048
  10. REMERON [Concomitant]
     Indication: SLEEP DISORDER THERAPY
     Route: 048
  11. VALIUM [Concomitant]
     Indication: ANXIETY
     Route: 048

REACTIONS (10)
  - ARNOLD-CHIARI MALFORMATION [None]
  - FEELING ABNORMAL [None]
  - HYPERHIDROSIS [None]
  - MALAISE [None]
  - MIGRAINE [None]
  - MUSCULOSKELETAL DISORDER [None]
  - NEURALGIA [None]
  - PRODUCT QUALITY ISSUE [None]
  - SLUGGISHNESS [None]
  - WITHDRAWAL SYNDROME [None]
